FAERS Safety Report 4622208-2 (Version None)
Quarter: 2005Q1

REPORT INFORMATION
  Report Type: 
  Country: None (occurrence: None)
  Receive Date: 20050322
  Receipt Date: 20050322
  Transmission Date: 20050727
  Serious: Yes (Other)
  Sender: FDA-Public Use
  Company Number: None

PATIENT
  Sex: Female
  Weight: 53.97 kg

DRUGS (4)
  1. CISPLATIN [Suspect]
     Dosage: 51MG IV X 6 DOSES
     Route: 042
     Dates: start: 20050103
  2. FLUOROURACIL [Suspect]
     Dosage: CONTINUOUS INFUSION FOR 38 DAYS
  3. INTERFERON [Suspect]
     Dosage: 3 MILLION UNITS SQ FOR 5 1/2 WEEKS
  4. XRT [Suspect]
     Dosage: MONDAY - FRIDAY FOR 5 1/2 WEEKS

REACTIONS (5)
  - DEHYDRATION [None]
  - HYPOKALAEMIA [None]
  - HYPOMAGNESAEMIA [None]
  - NAUSEA [None]
  - VOMITING [None]
